FAERS Safety Report 23807842 (Version 2)
Quarter: 2025Q2

REPORT INFORMATION
  Report Type: Spontaneous
  Country: DE (occurrence: DE)
  Receive Date: 20240502
  Receipt Date: 20250617
  Transmission Date: 20250716
  Serious: Yes (Other)
  Sender: MYLAN
  Company Number: DE-MYLANLABS-2024M1038646

PATIENT
  Age: 65 Year
  Sex: Male

DRUGS (8)
  1. GEMCITABINE [Suspect]
     Active Substance: GEMCITABINE
     Indication: Angiosarcoma
  2. GEMCITABINE [Suspect]
     Active Substance: GEMCITABINE
     Indication: Metastases to bone
     Route: 065
  3. GEMCITABINE [Suspect]
     Active Substance: GEMCITABINE
     Route: 065
  4. GEMCITABINE [Suspect]
     Active Substance: GEMCITABINE
  5. DACARBAZINE [Suspect]
     Active Substance: DACARBAZINE
     Indication: Angiosarcoma
  6. DACARBAZINE [Suspect]
     Active Substance: DACARBAZINE
     Indication: Metastases to bone
     Route: 065
  7. DACARBAZINE [Suspect]
     Active Substance: DACARBAZINE
     Route: 065
  8. DACARBAZINE [Suspect]
     Active Substance: DACARBAZINE

REACTIONS (2)
  - Drug ineffective [Unknown]
  - Disease progression [Unknown]
